FAERS Safety Report 6582708-5 (Version None)
Quarter: 2010Q1

REPORT INFORMATION
  Report Type: 
  Country: None (occurrence: None)
  Receive Date: 20100216
  Receipt Date: 20100203
  Transmission Date: 20100710
  Serious: Yes (Other)
  Sender: FDA-Public Use
  Company Number: IT-BAYER-201014830GPV

PATIENT

DRUGS (5)
  1. ASPIRIN [Suspect]
     Indication: ANTIPLATELET THERAPY
  2. ASPIRIN [Suspect]
     Dates: start: 20030101
  3. CLOPIDOGREL [Suspect]
     Indication: ANTIPLATELET THERAPY
  4. CLOPIDOGREL [Suspect]
     Dates: start: 20030101, end: 20030101
  5. UNFRACTIONED HEPARIN [Concomitant]
     Indication: COAGULATION TIME PROLONGED

REACTIONS (1)
  - THROMBOSIS IN DEVICE [None]
